FAERS Safety Report 12010557 (Version 1)
Quarter: 2016Q1

REPORT INFORMATION
  Report Type: Spontaneous
  Country: US (occurrence: None)
  Receive Date: 20160204
  Receipt Date: 20160204
  Transmission Date: 20160526
  Serious: Yes (Other)
  Sender: FDA-Public Use
  Company Number: None

PATIENT
  Age: 63 Year
  Sex: Male
  Weight: 92.53 kg

DRUGS (1)
  1. OTEZLA [Suspect]
     Active Substance: APREMILAST
     Indication: PSORIASIS
     Dosage: 2 PILLS TWICE DAILY TAKEN BY MOUTH
     Route: 048
     Dates: start: 20160108, end: 20160202

REACTIONS (8)
  - Movement disorder [None]
  - Tremor [None]
  - Sleep disorder [None]
  - Musculoskeletal pain [None]
  - Depression [None]
  - Anxiety [None]
  - Discomfort [None]
  - Diarrhoea [None]

NARRATIVE: CASE EVENT DATE: 20160201
